FAERS Safety Report 7286477-5 (Version None)
Quarter: 2011Q1

REPORT INFORMATION
  Report Type: 
  Country: None (occurrence: None)
  Receive Date: 20110131
  Receipt Date: 20110119
  Transmission Date: 20110831
  Serious: Yes (Disabling)
  Sender: FDA-Public Use
  Company Number: WAES 1101USA02340

PATIENT
  Age: 85 Year
  Sex: Male

DRUGS (1)
  1. SINEMET [Suspect]
     Indication: PARKINSON'S DISEASE
     Dosage: 25/100 MG/ PO
     Route: 048

REACTIONS (6)
  - DRUG DISPENSING ERROR [None]
  - ACTIVITIES OF DAILY LIVING IMPAIRED [None]
  - INCORRECT DOSE ADMINISTERED [None]
  - ASTHENIA [None]
  - GAIT DISTURBANCE [None]
  - HYPOKINESIA [None]
